FAERS Safety Report 8326981-1 (Version None)
Quarter: 2012Q2

REPORT INFORMATION
  Report Type: 
  Country: None (occurrence: None)
  Receive Date: 20120501
  Receipt Date: 20111109
  Transmission Date: 20120825
  Serious: No
  Sender: FDA-Public Use
  Company Number: US-SANOFI-AVENTIS-2011SA074337

PATIENT
  Sex: Male

DRUGS (3)
  1. APIDRA [Suspect]
     Dosage: DOSAGE: 60-80 UNITS THRICE DAILY
     Route: 058
  2. SOLOSTAR [Suspect]
  3. LANTUS [Suspect]
     Dosage: DOSE:50 UNIT(S)
     Route: 058

REACTIONS (1)
  - ARTHRITIS [None]
